FAERS Safety Report 16855399 (Version 2)
Quarter: 2019Q3

REPORT INFORMATION
  Report Type: Spontaneous
  Country: PH (occurrence: PH)
  Receive Date: 20190926
  Receipt Date: 20190929
  Transmission Date: 20191005
  Serious: No
  Sender: FDA-Public Use
  Company Number: PHHY2019PH222384

PATIENT
  Age: 62 Year
  Sex: Female

DRUGS (1)
  1. LAMISIL [Suspect]
     Active Substance: TERBINAFINE HYDROCHLORIDE
     Indication: ONYCHOMYCOSIS
     Dosage: UNK (3 G)
     Route: 065

REACTIONS (2)
  - Product use in unapproved indication [Unknown]
  - Product complaint [Unknown]
